FAERS Safety Report 8355705-7 (Version None)
Quarter: 2012Q2

REPORT INFORMATION
  Report Type: 
  Country: None (occurrence: None)
  Receive Date: 20120514
  Receipt Date: 20120503
  Transmission Date: 20120825
  Serious: Yes (Life-Threatening, Hospitalization)
  Sender: FDA-Public Use
  Company Number: FR-SP-2012-04679

PATIENT
  Sex: Male

DRUGS (1)
  1. IMMUCYST [Suspect]
     Indication: BLADDER CANCER
     Route: 043
     Dates: start: 20111101, end: 20120123

REACTIONS (14)
  - METABOLIC ACIDOSIS [None]
  - ODYNOPHAGIA [None]
  - DIARRHOEA [None]
  - OESOPHAGITIS [None]
  - DYSPHAGIA [None]
  - HYPOTHERMIA [None]
  - GASTRITIS [None]
  - GASTRIC ULCER [None]
  - VOMITING [None]
  - STOMATITIS HAEMORRHAGIC [None]
  - ASTHENIA [None]
  - HIATUS HERNIA [None]
  - DISSEMINATED TUBERCULOSIS [None]
  - RENAL FAILURE [None]
